FAERS Safety Report 5162895-6 (Version None)
Quarter: 2006Q4

REPORT INFORMATION
  Report Type: 
  Country: None (occurrence: None)
  Receive Date: 20061121
  Receipt Date: 20061110
  Transmission Date: 20070319
  Serious: Yes (Hospitalization)
  Sender: FDA-Public Use
  Company Number: 2006SP004195

PATIENT
  Age: 59 Year
  Sex: Female

DRUGS (4)
  1. PEG-INTRON [Suspect]
     Indication: HEPATITIS C
     Dosage: SC
     Route: 058
     Dates: start: 20061002
  2. REBETOL [Suspect]
     Indication: HEPATITIS C
     Dosage: PO
     Route: 048
     Dates: start: 20061002
  3. CARDURA   /00639301 [Concomitant]
  4. NORVASC [Concomitant]

REACTIONS (25)
  - ANOREXIA [None]
  - ANXIETY [None]
  - ARTHRALGIA [None]
  - ASTHENIA [None]
  - BLOOD GLUCOSE DECREASED [None]
  - BLOOD PRESSURE INCREASED [None]
  - CHILLS [None]
  - COLD SWEAT [None]
  - DEPRESSION [None]
  - DIABETES MELLITUS NON-INSULIN-DEPENDENT [None]
  - DIZZINESS [None]
  - DYSPNOEA [None]
  - FALL [None]
  - FEELING JITTERY [None]
  - GAIT DISTURBANCE [None]
  - HEADACHE [None]
  - HYPERHIDROSIS [None]
  - HYPOTENSION [None]
  - MEMORY IMPAIRMENT [None]
  - MUSCLE SPASMS [None]
  - NERVOUSNESS [None]
  - OESOPHAGEAL OEDEMA [None]
  - PALPITATIONS [None]
  - RECTAL HAEMORRHAGE [None]
  - VOMITING [None]
